FAERS Safety Report 19012179 (Version 2)
Quarter: 2021Q1

REPORT INFORMATION
  Report Type: Report from Study
  Country: NL (occurrence: NL)
  Receive Date: 20210316
  Receipt Date: 20210330
  Transmission Date: 20210420
  Serious: Yes (Other)
  Sender: FDA-Public Use
  Company Number: NL-MYLANLABS-2021M1014539

PATIENT
  Age: 65 Year
  Sex: Male
  Weight: 80 kg

DRUGS (4)
  1. BACLOFEN. [Concomitant]
     Active Substance: BACLOFEN
     Dosage: 2 DOSAGE FORM, QD
     Route: 048
  2. GLATIRAMEERACETAAT MYLAN 40 MG/ML [Suspect]
     Active Substance: GLATIRAMER ACETATE
     Indication: MULTIPLE SCLEROSIS
     Dosage: 40 MILLIGRAM, 3XW
     Route: 058
     Dates: start: 20200925, end: 20210301
  3. AMANTADINE. [Concomitant]
     Active Substance: AMANTADINE HYDROCHLORIDE
     Indication: FATIGUE
     Dosage: 1 DOSAGE FORM, QD
     Route: 048
     Dates: start: 20210304
  4. NITRAZEPAM [Concomitant]
     Active Substance: NITRAZEPAM
     Indication: SLEEP DISORDER
     Dosage: 1 DOSAGE FORM, QD OCASSIONALY HALF A TABLET
     Route: 048

REACTIONS (8)
  - Shock symptom [Recovered/Resolved]
  - Pollakiuria [Recovered/Resolved]
  - Dyspnoea [Recovered/Resolved]
  - Malaise [Recovered/Resolved]
  - Pallor [Recovered/Resolved]
  - Hyperhidrosis [Recovered/Resolved]
  - Back pain [Recovered/Resolved]
  - Syncope [Recovered/Resolved]

NARRATIVE: CASE EVENT DATE: 20210221
